FAERS Safety Report 17397281 (Version 3)
Quarter: 2020Q1

REPORT INFORMATION
  Report Type: Spontaneous
  Country: ES (occurrence: ES)
  Receive Date: 20200210
  Receipt Date: 20200318
  Transmission Date: 20200409
  Serious: Yes (Other)
  Sender: FDA-Public Use
  Company Number: NVSC2020ES028437

PATIENT
  Sex: Female

DRUGS (1)
  1. FEMARA [Suspect]
     Active Substance: LETROZOLE
     Indication: BREAST CANCER
     Dosage: UNK
     Route: 048
     Dates: start: 201901

REACTIONS (7)
  - Pruritus [Not Recovered/Not Resolved]
  - Respiratory tract infection [Unknown]
  - Respiratory failure [Unknown]
  - Skin plaque [Not Recovered/Not Resolved]
  - Erythema [Not Recovered/Not Resolved]
  - Lymphomatoid papulosis [Recovering/Resolving]
  - Pseudolymphoma [Not Recovered/Not Resolved]
